FAERS Safety Report 10090028 (Version 2)
Quarter: 2014Q2

REPORT INFORMATION
  Report Type: Report from Study
  Country: JP (occurrence: JP)
  Receive Date: 20140421
  Receipt Date: 20140505
  Transmission Date: 20141212
  Serious: Yes (Hospitalization)
  Sender: FDA-Public Use
  Company Number: JP-ROCHE-1381708

PATIENT
  Age: 55 Year
  Sex: Female
  Weight: 39 kg

DRUGS (15)
  1. TRASTUZUMAB EMTANSINE [Suspect]
     Indication: BREAST CANCER METASTATIC
     Route: 042
     Dates: start: 20140224
  2. LOXOPROFEN [Concomitant]
     Indication: CANCER PAIN
     Dosage: SINGLE USE
     Route: 048
     Dates: start: 20140225
  3. TRAMAL [Concomitant]
     Indication: CANCER PAIN
     Dosage: BEFORE IT SLEEPS OF THE MORNING
     Route: 048
     Dates: start: 20140127
  4. CALONAL [Concomitant]
     Indication: CANCER PAIN
     Route: 048
     Dates: start: 20130510
  5. GLYCYRON [Concomitant]
     Indication: HEPATIC FUNCTION ABNORMAL
     Route: 048
     Dates: start: 20130729
  6. URSO [Concomitant]
     Indication: HEPATIC FUNCTION ABNORMAL
     Route: 048
     Dates: start: 20130729
  7. LASIX [Concomitant]
     Indication: PLEURAL EFFUSION
     Dosage: MORNING
     Route: 048
     Dates: start: 20131125
  8. ALDACTONE A [Concomitant]
     Indication: PLEURAL EFFUSION
     Dosage: MORNING
     Route: 048
     Dates: start: 20131125, end: 20140406
  9. WHITE PETROLATUM [Concomitant]
     Indication: SKIN DISORDER
     Dosage: PROPER QUANTITY/DAY
     Route: 061
     Dates: start: 20131101
  10. FLAGYL [Concomitant]
     Indication: SKIN DISORDER
     Dosage: PROPER QUANTITY/DAY
     Route: 067
     Dates: start: 20131101
  11. HIRUDOID (JAPAN) [Concomitant]
     Indication: PALMAR-PLANTAR ERYTHRODYSAESTHESIA SYNDROME
     Dosage: PROPER QUANTITY/TIME?SINGLE USE
     Route: 061
     Dates: start: 20131206
  12. ALLEGRA [Concomitant]
     Indication: SEASONAL ALLERGY
     Dosage: MORNING AND EVENING
     Route: 048
     Dates: start: 20131227
  13. ANTEBATE [Concomitant]
     Indication: PALMAR-PLANTAR ERYTHRODYSAESTHESIA SYNDROME
     Dosage: PROPER QUANTITY/TIME?SINGLE USE
     Route: 061
     Dates: start: 20130803
  14. OPSO [Concomitant]
     Indication: CANCER PAIN
     Dosage: ONE SAC/TIME?SINGLE USE
     Route: 065
     Dates: start: 20130322
  15. MS CONTIN [Concomitant]
     Indication: CANCER PAIN
     Dosage: SINGLE USE
     Route: 048
     Dates: start: 20130319

REACTIONS (3)
  - Dehydration [Not Recovered/Not Resolved]
  - Hyperkalaemia [Unknown]
  - Renal impairment [Unknown]
